FAERS Safety Report 8504376 (Version 3)
Quarter: 2013Q2

REPORT INFORMATION
  Report Type: Spontaneous
  Country: US (occurrence: None)
  Receive Date: 20120327
  Receipt Date: 20120709
  Transmission Date: 20140414
  Serious: Yes (Other)
  Sender: FDA-Public Use
  Company Number: PHEH2009US13436

PATIENT
  Age: 63 Year
  Sex: Male
  Weight: 83.9 kg

DRUGS (10)
  1. GLEEVEC [Suspect]
     Dosage: 400 MG, BID; 300 MG. BID; 1-- ,G. TID, ORAL
     Dates: start: 2005
  2. NORVASC [Concomitant]
  3. LIPITOR [Concomitant]
  4. CELEBREX [Concomitant]
  5. LORAZEPAM [Concomitant]
  6. NEXIUM [Concomitant]
  7. PRILOSEC [Concomitant]
  8. OXYCODONE HYDROCHLORIDE [Concomitant]
  9. ATIVAN (LORAZEPAM) TABLET [Concomitant]
  10. AMLODIPINE (AMLODIPINE) [Concomitant]

REACTIONS (10)
  - ANAEMIA [None]
  - ABDOMINAL PAIN UPPER [None]
  - NAUSEA [None]
  - FLUID RETENTION [None]
  - FATIGUE [None]
  - BACK PAIN [None]
  - Arthropathy [None]
  - Diarrhoea [None]
  - Joint swelling [None]
  - Eyelid oedema [None]
